FAERS Safety Report 16066455 (Version 4)
Quarter: 2019Q4

REPORT INFORMATION
  Report Type: Spontaneous
  Country: US (occurrence: US)
  Receive Date: 20190313
  Receipt Date: 20191105
  Transmission Date: 20200122
  Serious: Yes (Other)
  Sender: FDA-Public Use
  Company Number: US-ASTRAZENECA-2019SE11954

PATIENT
  Age: 21165 Day
  Sex: Female
  Weight: 72.6 kg

DRUGS (35)
  1. PROTONIX [Concomitant]
     Active Substance: PANTOPRAZOLE SODIUM
  2. ACETAZOLAMIDE. [Concomitant]
     Active Substance: ACETAZOLAMIDE
  3. PEPCID [Concomitant]
     Active Substance: FAMOTIDINE
  4. DELTASONE [Concomitant]
     Active Substance: PREDNISONE
  5. PENLAC [Concomitant]
     Active Substance: CICLOPIROX
  6. DUREZOL [Concomitant]
     Active Substance: DIFLUPREDNATE
  7. METOCLOPRAMIDE. [Concomitant]
     Active Substance: METOCLOPRAMIDE
  8. ZANTAC [Concomitant]
     Active Substance: RANITIDINE HYDROCHLORIDE
  9. AMBIEN [Concomitant]
     Active Substance: ZOLPIDEM TARTRATE
  10. ZESTRIL [Concomitant]
     Active Substance: LISINOPRIL
  11. MYRBETRIQ [Concomitant]
     Active Substance: MIRABEGRON
  12. ULTRAM [Concomitant]
     Active Substance: TRAMADOL HYDROCHLORIDE
  13. METHOTREXATE. [Concomitant]
     Active Substance: METHOTREXATE
  14. PRILOSEC OTC [Suspect]
     Active Substance: OMEPRAZOLE MAGNESIUM
     Indication: GASTROOESOPHAGEAL REFLUX DISEASE
     Route: 048
     Dates: start: 2011, end: 2018
  15. NORVASC [Concomitant]
     Active Substance: AMLODIPINE BESYLATE
  16. CLOBETASOL [Concomitant]
     Active Substance: CLOBETASOL
  17. PRILOSEC [Suspect]
     Active Substance: OMEPRAZOLE MAGNESIUM
     Indication: GASTROOESOPHAGEAL REFLUX DISEASE
     Dosage: OMEPRAZOLE-GENERIC
     Route: 048
     Dates: start: 20081020
  18. ASTELIN [Concomitant]
     Active Substance: AZELASTINE HYDROCHLORIDE
  19. HUMIRA [Concomitant]
     Active Substance: ADALIMUMAB
  20. PEPCID OTC [Concomitant]
     Active Substance: FAMOTIDINE
  21. PRILOSEC [Suspect]
     Active Substance: OMEPRAZOLE MAGNESIUM
     Indication: GASTROOESOPHAGEAL REFLUX DISEASE
     Dosage: OMEPRAZOLE - GENERIC
     Route: 065
     Dates: start: 2008, end: 2016
  22. PRILOSEC OTC [Suspect]
     Active Substance: OMEPRAZOLE MAGNESIUM
     Indication: GASTROOESOPHAGEAL REFLUX DISEASE
     Route: 048
     Dates: start: 2008, end: 2016
  23. AMLODIPINE [Concomitant]
     Active Substance: AMLODIPINE BESYLATE
  24. XANAX [Concomitant]
     Active Substance: ALPRAZOLAM
  25. GABAPENTIN. [Concomitant]
     Active Substance: GABAPENTIN
  26. LANSOPRAZOL-AMOXICILLIN [Concomitant]
  27. PRILOSEC OTC [Suspect]
     Active Substance: OMEPRAZOLE MAGNESIUM
     Indication: GASTROOESOPHAGEAL REFLUX DISEASE
     Route: 048
     Dates: start: 2003
  28. ONDANSETRON [Concomitant]
     Active Substance: ONDANSETRON
  29. LISINOPRIL. [Concomitant]
     Active Substance: LISINOPRIL
  30. PRILOSEC [Suspect]
     Active Substance: OMEPRAZOLE MAGNESIUM
     Indication: GASTROOESOPHAGEAL REFLUX DISEASE
     Route: 048
     Dates: start: 2008, end: 2010
  31. PRILOSEC [Suspect]
     Active Substance: OMEPRAZOLE MAGNESIUM
     Indication: GASTROOESOPHAGEAL REFLUX DISEASE
     Route: 048
  32. PRILOSEC [Suspect]
     Active Substance: OMEPRAZOLE MAGNESIUM
     Indication: GASTROOESOPHAGEAL REFLUX DISEASE
     Dosage: OMEPRAZOLE-GENERIC
     Route: 048
     Dates: start: 20140422
  33. ZOLPIDEM TARTRATE. [Concomitant]
     Active Substance: ZOLPIDEM TARTRATE
  34. ZOFRAN [Concomitant]
     Active Substance: ONDANSETRON HYDROCHLORIDE
  35. AMOXICILLIN. [Concomitant]
     Active Substance: AMOXICILLIN

REACTIONS (2)
  - Renal injury [Unknown]
  - Chronic kidney disease [Not Recovered/Not Resolved]

NARRATIVE: CASE EVENT DATE: 20151207
